FAERS Safety Report 4332023-5 (Version None)
Quarter: 2004Q2

REPORT INFORMATION
  Report Type: 
  Country: None (occurrence: None)
  Receive Date: 20040405
  Receipt Date: 20040401
  Transmission Date: 20050107
  Serious: Yes (Death, Hospitalization)
  Sender: FDA-Public Use
  Company Number: PHRM2004FR01416

PATIENT
  Age: 64 Year
  Sex: Female

DRUGS (7)
  1. COTAREG [Suspect]
     Indication: HYPERTENSION
     Dosage: 1 DF, QD
     Route: 048
     Dates: start: 20040217
  2. ALLOPURINOL [Suspect]
     Route: 065
     Dates: start: 20040217
  3. ADALAT [Concomitant]
     Route: 065
  4. LESCOL [Concomitant]
     Route: 048
  5. TARDYFERON [Concomitant]
     Route: 065
  6. ACETAMINOPHEN [Concomitant]
     Route: 065
  7. BACTRIM [Concomitant]
     Indication: URINARY TRACT INFECTION

REACTIONS (18)
  - BLOOD PRESSURE ABNORMAL [None]
  - CYSTITIS [None]
  - DERMATITIS BULLOUS [None]
  - DERMATITIS EXFOLIATIVE [None]
  - DESQUAMATION MOUTH [None]
  - EPIDERMAL NECROSIS [None]
  - EXANTHEM [None]
  - HAEMATOCRIT DECREASED [None]
  - HAEMOGLOBIN DECREASED [None]
  - HEADACHE [None]
  - HEPATIC ENZYME INCREASED [None]
  - NIKOLSKY'S SIGN [None]
  - POLLAKIURIA [None]
  - PRODUCTIVE COUGH [None]
  - RENAL FAILURE [None]
  - SOMNOLENCE [None]
  - TOXIC EPIDERMAL NECROLYSIS [None]
  - WHITE BLOOD CELL COUNT INCREASED [None]
